FAERS Safety Report 5818300-7 (Version None)
Quarter: 2008Q3

REPORT INFORMATION
  Report Type: 
  Country: None (occurrence: None)
  Receive Date: 20080716
  Receipt Date: 20080708
  Transmission Date: 20090109
  Serious: Yes (Death, Hospitalization)
  Sender: FDA-Public Use
  Company Number: OMPQ-NO-0806S-0406

PATIENT
  Age: 57 Year
  Sex: Male

DRUGS (1)
  1. OMNIPAQUE 140 [Suspect]
     Indication: BACK PAIN
     Dosage: 10 ML, SINGLE DOSE, I.T.
     Route: 037
     Dates: start: 20080617, end: 20080617

REACTIONS (4)
  - CONVULSION [None]
  - PARTIAL SEIZURES [None]
  - RENAL FAILURE ACUTE [None]
  - RHABDOMYOLYSIS [None]
